FAERS Safety Report 16085358 (Version 3)
Quarter: 2019Q2

REPORT INFORMATION
  Report Type: Spontaneous
  Country: JP (occurrence: JP)
  Receive Date: 20190318
  Receipt Date: 20190516
  Transmission Date: 20190711
  Serious: Yes (Death, Other)
  Sender: FDA-Public Use
  Company Number: JP-BRISTOL-MYERS SQUIBB COMPANY-BMS-2019-024657

PATIENT
  Age: 76 Year
  Sex: Male

DRUGS (3)
  1. YERVOY [Suspect]
     Active Substance: IPILIMUMAB
     Indication: METASTATIC RENAL CELL CARCINOMA
     Dosage: UNK
     Route: 041
     Dates: start: 20181211, end: 20190104
  2. PREDNISOLONE. [Concomitant]
     Active Substance: PREDNISOLONE
     Indication: PRODUCT USED FOR UNKNOWN INDICATION
     Route: 065
  3. OPDIVO [Suspect]
     Active Substance: NIVOLUMAB
     Indication: METASTATIC RENAL CELL CARCINOMA
     Dosage: UNK
     Route: 041
     Dates: start: 20181211, end: 20190104

REACTIONS (4)
  - Aortic aneurysm rupture [Fatal]
  - Meningitis [Unknown]
  - Pyrexia [Unknown]
  - Taste disorder [Unknown]

NARRATIVE: CASE EVENT DATE: 20190125
